FAERS Safety Report 8138714-2 (Version None)
Quarter: 2012Q1

REPORT INFORMATION
  Report Type: 
  Country: None (occurrence: None)
  Receive Date: 20120215
  Receipt Date: 20120209
  Transmission Date: 20120608
  Serious: Yes (Death, Hospitalization)
  Sender: FDA-Public Use
  Company Number: US-GLAXOSMITHKLINE-A0913503A

PATIENT
  Age: 64 Year
  Sex: Female

DRUGS (14)
  1. PROTONIX [Concomitant]
  2. CARDIZEM [Concomitant]
  3. BECONASE [Concomitant]
  4. METOCLOPRAMIDE [Concomitant]
  5. ATROVENT [Concomitant]
  6. ADVAIR DISKUS 100/50 [Concomitant]
  7. SPIRIVA [Concomitant]
  8. ELAVIL [Concomitant]
  9. ALBUTEROL [Concomitant]
  10. LIPITOR [Concomitant]
  11. PREMARIN [Concomitant]
  12. AVANDIA [Suspect]
     Indication: DIABETES MELLITUS
     Dosage: 4MG TWICE PER DAY
     Route: 048
     Dates: start: 20001101, end: 20070301
  13. LANSOPRAZOLE [Concomitant]
  14. NORVASC [Concomitant]

REACTIONS (3)
  - ACUTE CORONARY SYNDROME [None]
  - CARDIOVASCULAR DISORDER [None]
  - CARDIAC FAILURE CONGESTIVE [None]
